FAERS Safety Report 22523496 (Version 3)
Quarter: 2023Q2

REPORT INFORMATION
  Report Type: Spontaneous
  Country: US (occurrence: US)
  Receive Date: 20230606
  Receipt Date: 20230612
  Transmission Date: 20230721
  Serious: Yes (Other)
  Sender: FDA-Public Use
  Company Number: US-ABBVIE-2316148US

PATIENT
  Sex: Female

DRUGS (3)
  1. LINZESS [Suspect]
     Active Substance: LINACLOTIDE
     Indication: Product used for unknown indication
     Route: 048
  2. LINZESS [Suspect]
     Active Substance: LINACLOTIDE
     Indication: Product used for unknown indication
     Route: 048
  3. LINZESS [Suspect]
     Active Substance: LINACLOTIDE
     Indication: Product used for unknown indication
     Route: 048

REACTIONS (2)
  - Colostomy [Unknown]
  - Abdominal discomfort [Unknown]
